FAERS Safety Report 17362160 (Version 1)
Quarter: 2020Q1

REPORT INFORMATION
  Report Type: Spontaneous
  Country: NO (occurrence: NO)
  Receive Date: 20200203
  Receipt Date: 20200203
  Transmission Date: 20200409
  Serious: Yes (Other)
  Sender: FDA-Public Use
  Company Number: NO-ROCHE-2536834

PATIENT
  Age: 41 Year
  Sex: Female
  Weight: 50 kg

DRUGS (2)
  1. RIVOTRIL [Suspect]
     Active Substance: CLONAZEPAM
     Indication: MUSCLE RELAXANT THERAPY
     Dosage: 0,25 MG FOR 4 DAYS, ?0,5 MG FOR 7 DAYS,?1,0 MG FOR  14 DAYS. ?DISCONTINUATION FOR 7 DAYS BECAUSE OF
     Route: 048
     Dates: start: 20191111, end: 20191212
  2. RIVOTRIL [Suspect]
     Active Substance: CLONAZEPAM
     Indication: PAIN

REACTIONS (34)
  - Anxiety [Recovering/Resolving]
  - Amnesia [Recovering/Resolving]
  - Hyperacusis [Recovering/Resolving]
  - Myalgia [Recovering/Resolving]
  - Fatigue [Recovering/Resolving]
  - Vaginal haemorrhage [Recovering/Resolving]
  - Hostility [Recovering/Resolving]
  - Decreased appetite [Recovering/Resolving]
  - Dyspnoea [Recovering/Resolving]
  - Delusion [Recovering/Resolving]
  - Confusional state [Recovering/Resolving]
  - Muscular weakness [Recovering/Resolving]
  - Insomnia [Recovering/Resolving]
  - Suicidal ideation [Recovering/Resolving]
  - Hyperhidrosis [Recovering/Resolving]
  - Hypomania [Recovering/Resolving]
  - Aphasia [Recovering/Resolving]
  - Diplopia [Recovering/Resolving]
  - Hyperaesthesia [Recovering/Resolving]
  - Nystagmus [Recovering/Resolving]
  - Impulse-control disorder [Recovering/Resolving]
  - Time perception altered [Recovering/Resolving]
  - Coordination abnormal [Recovering/Resolving]
  - Palpitations [Recovering/Resolving]
  - Disorientation [Recovering/Resolving]
  - Freezing phenomenon [Recovering/Resolving]
  - Presyncope [Recovering/Resolving]
  - Emotional disorder [Recovering/Resolving]
  - Hypnagogic hallucination [Recovering/Resolving]
  - Abnormal behaviour [Recovering/Resolving]
  - Thirst [Recovering/Resolving]
  - Balance disorder [Recovering/Resolving]
  - Weight decreased [Recovering/Resolving]
  - Contusion [Recovering/Resolving]
